FAERS Safety Report 6962476-5 (Version None)
Quarter: 2010Q3

REPORT INFORMATION
  Report Type: 
  Country: None (occurrence: None)
  Receive Date: 20100902
  Receipt Date: 20100823
  Transmission Date: 20110219
  Serious: Yes (Death, Life-Threatening)
  Sender: FDA-Public Use
  Company Number: DE-PFIZER INC-2010105620

PATIENT
  Age: 89 Year
  Sex: Female
  Weight: 73 kg

DRUGS (3)
  1. ZYVOX [Suspect]
     Indication: ENDOCARDITIS
     Dosage: 600 MG, 2X/DAY
     Route: 048
     Dates: start: 20100714, end: 20100715
  2. VANCOMYCIN [Concomitant]
     Indication: ENDOCARDITIS
     Dosage: 500 MG, 1X/DAY
     Route: 042
     Dates: start: 20100704, end: 20100720
  3. GENTAMICIN [Concomitant]
     Indication: ENDOCARDITIS
     Dosage: 80 MG, 3X/DAY
     Route: 042
     Dates: start: 20100705, end: 20100720

REACTIONS (1)
  - TOXIC EPIDERMAL NECROLYSIS [None]
